FAERS Safety Report 4520165-0 (Version None)
Quarter: 2004Q4

REPORT INFORMATION
  Report Type: 
  Country: None (occurrence: None)
  Receive Date: 20041029
  Receipt Date: 20040723
  Transmission Date: 20050328
  Serious: Yes (Hospitalization)
  Sender: FDA-Public Use
  Company Number: US013094

PATIENT
  Age: 53 Year
  Sex: Female

DRUGS (5)
  1. PROVIGIL [Suspect]
     Dosage: 50 MG QD ORAL
     Route: 048
     Dates: start: 20040312, end: 20040313
  2. LITHIUM [Suspect]
     Dosage: 1500 MG QD ORAL
     Route: 048
  3. LITHIUM [Concomitant]
  4. LAMICTAL [Concomitant]
  5. RISPERDAL [Concomitant]

REACTIONS (1)
  - BIPOLAR I DISORDER [None]
